FAERS Safety Report 9708654 (Version 5)
Quarter: 2014Q1

REPORT INFORMATION
  Report Type: Report from Study
  Country: US (occurrence: US)
  Receive Date: 20131125
  Receipt Date: 20140127
  Transmission Date: 20141002
  Serious: Yes (Other)
  Sender: FDA-Public Use
  Company Number: US-TEVA-446543USA

PATIENT
  Age: 29 Year
  Sex: Female

DRUGS (3)
  1. CLARAVIS [Suspect]
     Dosage: 40 MILLIGRAM DAILY;
     Route: 048
     Dates: start: 201307, end: 20131231
  2. TRI-NORINYL [Concomitant]
     Dates: start: 20130601
  3. ADDERALL [Concomitant]
     Dates: start: 20130901

REACTIONS (2)
  - Abortion spontaneous [Recovered/Resolved]
  - Unintended pregnancy [Recovered/Resolved]
